FAERS Safety Report 9437727 (Version 2)
Quarter: 2013Q3

REPORT INFORMATION
  Report Type: Report from Study
  Country: GR (occurrence: GR)
  Receive Date: 20130802
  Receipt Date: 20130912
  Transmission Date: 20140515
  Serious: Yes (Other)
  Sender: FDA-Public Use
  Company Number: PHHO2013GR010052

PATIENT
  Age: 24 Year
  Sex: Female
  Weight: 56.3 kg

DRUGS (6)
  1. AFINITOR [Suspect]
     Indication: ASTROCYTOMA
     Dosage: CODE NOT BROKEN
     Dates: start: 20111117
  2. AFINITOR [Suspect]
     Indication: TUBEROUS SCLEROSIS
  3. LADOSE [Concomitant]
     Indication: DEPRESSION
     Dosage: 10 MG, QD
     Route: 048
     Dates: start: 20120401
  4. LIPITOR [Concomitant]
     Indication: HYPERCHOLESTEROLAEMIA
     Dosage: 10 MG, QD
     Route: 048
     Dates: start: 20120511
  5. ZEBINIX [Concomitant]
     Indication: EPILEPSY
     Dosage: 1600 MG, QD
     Route: 048
     Dates: start: 20120425
  6. FRISIUM [Concomitant]
     Indication: EPILEPSY
     Dosage: 5 MG, QD
     Route: 048
     Dates: start: 20121221

REACTIONS (1)
  - Ovarian cyst [Unknown]
